FAERS Safety Report 20962081 (Version 1)
Quarter: 2022Q2

REPORT INFORMATION
  Report Type: Spontaneous
  Country: IN (occurrence: IN)
  Receive Date: 20220615
  Receipt Date: 20220615
  Transmission Date: 20220721
  Serious: Yes (Hospitalization, Other)
  Sender: FDA-Public Use
  Company Number: IN-MLMSERVICE-20220602-3590537-1

PATIENT
  Age: 38 Year
  Sex: Male

DRUGS (1)
  1. TACROLIMUS [Suspect]
     Active Substance: TACROLIMUS
     Indication: Product used for unknown indication

REACTIONS (5)
  - Radius fracture [Recovered/Resolved]
  - Pathological fracture [Recovered/Resolved]
  - Toxicity to various agents [Unknown]
  - Hypertension [Recovered/Resolved]
  - Seizure [Recovered/Resolved]
